FAERS Safety Report 14026229 (Version 3)
Quarter: 2017Q4

REPORT INFORMATION
  Report Type: Spontaneous
  Country: US (occurrence: US)
  Receive Date: 20170929
  Receipt Date: 20171027
  Transmission Date: 20180321
  Serious: Yes (Other)
  Sender: FDA-Public Use
  Company Number: US-009507513-1709USA014407

PATIENT
  Age: 63 Year
  Sex: Male
  Weight: 80.27 kg

DRUGS (3)
  1. EMEND [Suspect]
     Active Substance: APREPITANT
     Indication: NAUSEA
     Dosage: ONCE EVERY 3 WEEKS
     Route: 042
     Dates: start: 20170927, end: 20170927
  2. ALOXI [Concomitant]
     Active Substance: PALONOSETRON HYDROCHLORIDE
     Indication: NAUSEA
     Dosage: 0.25
     Route: 042
     Dates: start: 20170927, end: 20170927
  3. DEX (DEXAMETHASONE SODIUM PHOSPHATE) [Concomitant]
     Indication: PREMEDICATION
     Dosage: 20 MG, UNK
     Route: 042
     Dates: start: 20170927, end: 20170927

REACTIONS (10)
  - Dizziness [Recovered/Resolved]
  - Dysphagia [Unknown]
  - Feeling abnormal [Recovered/Resolved]
  - Ocular hyperaemia [Recovered/Resolved]
  - Restlessness [Recovered/Resolved]
  - Anxiety [Unknown]
  - Depression [Unknown]
  - Dysphonia [Unknown]
  - Erythema [Recovered/Resolved]
  - Swelling [Unknown]

NARRATIVE: CASE EVENT DATE: 20170927
